FAERS Safety Report 17759662 (Version 2)
Quarter: 2020Q2

REPORT INFORMATION
  Report Type: Spontaneous
  Country: US (occurrence: US)
  Receive Date: 20200508
  Receipt Date: 20200528
  Transmission Date: 20200714
  Serious: No
  Sender: FDA-Public Use
  Company Number: US-ASTRAZENECA-2020SE60015

PATIENT
  Sex: Female

DRUGS (1)
  1. SYMBICORT [Suspect]
     Active Substance: BUDESONIDE\FORMOTEROL FUMARATE DIHYDRATE
     Dosage: 80/4.5 MCG 120 INHALATIONS 2 PUFFS, TWO TIMES A DAY
     Route: 055
     Dates: start: 20200417

REACTIONS (4)
  - Bronchitis [Unknown]
  - Intentional product misuse [Not Recovered/Not Resolved]
  - Drug dose omission by device [Unknown]
  - Drug delivery system issue [Unknown]
